FAERS Safety Report 9424391 (Version 1)
Quarter: 2013Q3

REPORT INFORMATION
  Report Type: Spontaneous
  Country: US (occurrence: None)
  Receive Date: 20130726
  Receipt Date: 20130726
  Transmission Date: 20140515
  Serious: Yes (Other)
  Sender: FDA-Public Use
  Company Number: None

PATIENT
  Age: 51 Year
  Sex: Male
  Weight: 112.95 kg

DRUGS (1)
  1. ASTELIN [Suspect]
     Indication: MULTIPLE ALLERGIES
     Dosage: 2 SPRAYS PER NOSTRIL, TWICE DAILY, NASAL
     Route: 045
     Dates: start: 20130628, end: 20130703

REACTIONS (5)
  - Discomfort [None]
  - Nasal discomfort [None]
  - Nasal ulcer [None]
  - Ulcer haemorrhage [None]
  - Pain [None]
